FAERS Safety Report 19722842 (Version 1)
Quarter: 2021Q3

REPORT INFORMATION
  Report Type: Spontaneous
  Country: US (occurrence: US)
  Receive Date: 20210820
  Receipt Date: 20210820
  Transmission Date: 20211014
  Serious: No
  Sender: FDA-Public Use
  Company Number: US-AMGEN-USASP2021127107

PATIENT
  Age: 43 Year
  Sex: Female

DRUGS (2)
  1. APREMILAST [Suspect]
     Active Substance: APREMILAST
     Indication: OFF LABEL USE
     Dosage: 30 MILLIGRAM, BID
     Route: 065
  2. APREMILAST [Suspect]
     Active Substance: APREMILAST
     Indication: BENIGN FAMILIAL PEMPHIGUS
     Dosage: TITRATION PACK
     Route: 065

REACTIONS (2)
  - Off label use [Unknown]
  - Drug effective for unapproved indication [Unknown]
